FAERS Safety Report 8015440-1 (Version None)
Quarter: 2011Q4

REPORT INFORMATION
  Report Type: 
  Country: None (occurrence: None)
  Receive Date: 20111230
  Receipt Date: 20111216
  Transmission Date: 20120403
  Serious: Yes (Hospitalization)
  Sender: FDA-Public Use
  Company Number: FR-MYLANLABS-2011S1026101

PATIENT
  Age: 55 Year
  Sex: Male

DRUGS (3)
  1. FLUOROURACIL [Suspect]
     Indication: HEAD AND NECK CANCER
     Dosage: TOTAL DOSE 6150MG
     Route: 065
  2. DOCETAXEL [Concomitant]
     Indication: HEAD AND NECK CANCER
     Route: 065
  3. CISPLATIN [Concomitant]
     Indication: HEAD AND NECK CANCER
     Route: 065

REACTIONS (3)
  - LOSS OF CONSCIOUSNESS [None]
  - CONVULSION [None]
  - NEUTROPENIA [None]
